FAERS Safety Report 17043137 (Version 4)
Quarter: 2020Q1

REPORT INFORMATION
  Report Type: Spontaneous
  Country: US (occurrence: US)
  Receive Date: 20191118
  Receipt Date: 20200203
  Transmission Date: 20200409
  Serious: No
  Sender: FDA-Public Use
  Company Number: US-PFIZER INC-2017031844

PATIENT
  Age: 83 Year
  Sex: Female

DRUGS (5)
  1. CELEBREX [Suspect]
     Active Substance: CELECOXIB
     Indication: ARTHRITIS
     Dosage: UNK, 1X/DAY
     Dates: end: 2014
  2. CELEBREX [Suspect]
     Active Substance: CELECOXIB
     Dosage: UNK, 2X/DAY
     Dates: start: 2014
  3. CELEBREX [Suspect]
     Active Substance: CELECOXIB
     Indication: PAIN
     Dosage: 100 MG, 2X/DAY
     Dates: start: 2005
  4. CELEBREX [Suspect]
     Active Substance: CELECOXIB
     Dosage: 200 MG, UNK
  5. CELEBREX [Suspect]
     Active Substance: CELECOXIB
     Dosage: 1 CAP BID (TWICE A DAY)
     Route: 048

REACTIONS (9)
  - Sensitivity to weather change [Unknown]
  - Product dispensing error [Unknown]
  - Pain [Unknown]
  - Hypoacusis [Unknown]
  - Neck pain [Recovering/Resolving]
  - Intentional product misuse [Unknown]
  - Musculoskeletal pain [Unknown]
  - Arthralgia [Unknown]
  - Arthropathy [Not Recovered/Not Resolved]

NARRATIVE: CASE EVENT DATE: 2014
